FAERS Safety Report 7582239-X (Version None)
Quarter: 2011Q2

REPORT INFORMATION
  Report Type: 
  Country: None (occurrence: None)
  Receive Date: 20110527
  Receipt Date: 20110308
  Transmission Date: 20111010
  Serious: Yes (Hospitalization, Other)
  Sender: FDA-Public Use
  Company Number: US201102000821

PATIENT
  Age: 64 Year
  Sex: Male
  Weight: 158.7 kg

DRUGS (4)
  1. PRAVASTATIN [Concomitant]
  2. LOSARTAN POTASSIUM [Concomitant]
  3. ALLOPURINOL [Concomitant]
  4. BYETTA [Suspect]
     Indication: TYPE 2 DIABETES MELLITUS
     Dosage: 5 UG, 2/D, SUBCUTANEOUS, 5 UG, 2/D, SUBCUTANEOUS
     Route: 058

REACTIONS (3)
  - RENAL FAILURE ACUTE [None]
  - DEHYDRATION [None]
  - NAUSEA [None]
